FAERS Safety Report 24289820 (Version 1)
Quarter: 2024Q3

REPORT INFORMATION
  Report Type: Spontaneous
  Country: US (occurrence: US)
  Receive Date: 20240906
  Receipt Date: 20240906
  Transmission Date: 20241017
  Serious: No
  Sender: ROCHE
  Company Number: US-ROCHE-10000072224

PATIENT

DRUGS (4)
  1. XOLAIR [Suspect]
     Active Substance: OMALIZUMAB
     Indication: Product used for unknown indication
     Route: 065
  2. SINGULAIR [Concomitant]
     Active Substance: MONTELUKAST SODIUM
  3. QUERCETIN [Concomitant]
     Active Substance: QUERCETIN
  4. KETOTIFEN [Concomitant]
     Active Substance: KETOTIFEN

REACTIONS (1)
  - Drug hypersensitivity [Unknown]
